FAERS Safety Report 4425064-0 (Version None)
Quarter: 2004Q3

REPORT INFORMATION
  Report Type: 
  Country: None (occurrence: None)
  Receive Date: 20040811
  Receipt Date: 20040811
  Transmission Date: 20050211
  Serious: Yes (Hospitalization)
  Sender: FDA-Public Use
  Company Number: None

PATIENT
  Age: 67 Year
  Sex: Female
  Weight: 65 kg

DRUGS (2)
  1. CYTOXAN [Suspect]
     Dosage: 50MG  DAILY  ORAL
     Route: 048
     Dates: start: 20031001, end: 20040804
  2. CELEBREX [Suspect]
     Dosage: 400MG  TWICE DAIL  ORAL
     Route: 048
     Dates: start: 20031008, end: 20040804

REACTIONS (12)
  - ABDOMINAL MASS [None]
  - ABDOMINAL PAIN [None]
  - ANAEMIA [None]
  - FATIGUE [None]
  - MALIGNANT NEOPLASM PROGRESSION [None]
  - METASTASES TO LUNG [None]
  - METASTASIS [None]
  - NAUSEA [None]
  - PERICARDIAL EFFUSION [None]
  - PERITONEAL HAEMORRHAGE [None]
  - SCAN ABDOMEN ABNORMAL [None]
  - VOMITING [None]
